FAERS Safety Report 13275723 (Version 1)
Quarter: 2017Q1

REPORT INFORMATION
  Report Type: Spontaneous
  Country: IE (occurrence: IE)
  Receive Date: 20170228
  Receipt Date: 20170228
  Transmission Date: 20170428
  Serious: Yes (Other)
  Sender: FDA-Public Use
  Company Number: IE-009507513-1702IRL011332

PATIENT
  Sex: Female

DRUGS (1)
  1. IMPLANON [Suspect]
     Active Substance: ETONOGESTREL
     Dosage: 1 DF, UNK
     Route: 059

REACTIONS (4)
  - Implant site pain [Unknown]
  - Implant site nerve injury [Unknown]
  - Product quality issue [Unknown]
  - Device breakage [Not Recovered/Not Resolved]
